FAERS Safety Report 13343896 (Version 2)
Quarter: 2017Q2

REPORT INFORMATION
  Report Type: Spontaneous
  Country: DE (occurrence: DE)
  Receive Date: 20170316
  Receipt Date: 20170414
  Transmission Date: 20170830
  Serious: Yes (Hospitalization, Other)
  Sender: FDA-Public Use
  Company Number: DE-B.I. PHARMACEUTICALS,INC./RIDGEFIELD-2017-BI-013744

PATIENT
  Age: 49 Year
  Sex: Female
  Weight: 94 kg

DRUGS (4)
  1. DOCETAXEL. [Suspect]
     Active Substance: DOCETAXEL
     Indication: LUNG ADENOCARCINOMA
     Dosage: DOSE : 30 MG/M2 PER WEEK
     Route: 042
     Dates: start: 20160715, end: 201701
  2. VARGATEF [Suspect]
     Active Substance: NINTEDANIB
     Indication: LUNG ADENOCARCINOMA
     Route: 048
     Dates: start: 201607
  3. DEXAMETHASON [Suspect]
     Active Substance: DEXAMETHASONE
     Indication: LUNG ADENOCARCINOMA
     Route: 048
     Dates: start: 201607, end: 201701
  4. VARGATEF [Suspect]
     Active Substance: NINTEDANIB
     Route: 048

REACTIONS (4)
  - Pyrexia [Recovered/Resolved]
  - Dyspnoea [Recovered/Resolved]
  - Pneumocystis jirovecii pneumonia [Recovered/Resolved]
  - Vomiting [Recovered/Resolved]

NARRATIVE: CASE EVENT DATE: 201610
